FAERS Safety Report 10524716 (Version 5)
Quarter: 2017Q3

REPORT INFORMATION
  Report Type: Report from Study
  Country: AT (occurrence: AT)
  Receive Date: 20141017
  Receipt Date: 20170828
  Transmission Date: 20171127
  Serious: Yes (Death, Hospitalization)
  Sender: FDA-Public Use
  Company Number: AT-SA-2014SA142279

PATIENT
  Age: 59 Year
  Sex: Male
  Weight: 73 kg

DRUGS (8)
  1. ZALTRAP [Suspect]
     Active Substance: ZIV-AFLIBERCEPT
     Indication: COLORECTAL CANCER METASTATIC
     Route: 042
     Dates: start: 20140909, end: 20140909
  2. 5-FU [Concomitant]
     Active Substance: FLUOROURACIL
     Dates: start: 20140623, end: 20140623
  3. FOLINIC ACID [Concomitant]
     Active Substance: LEUCOVORIN
     Dates: start: 20140909, end: 20140909
  4. ZALTRAP [Suspect]
     Active Substance: ZIV-AFLIBERCEPT
     Indication: COLORECTAL CANCER METASTATIC
     Route: 042
     Dates: start: 20140623, end: 20140623
  5. IRINOTECAN [Concomitant]
     Active Substance: IRINOTECAN
     Dates: start: 20140909, end: 20140909
  6. 5-FU [Concomitant]
     Active Substance: FLUOROURACIL
     Dates: start: 20140909, end: 20140909
  7. FOLINIC ACID [Concomitant]
     Active Substance: LEUCOVORIN
     Dates: start: 20140623, end: 20140623
  8. IRINOTECAN [Concomitant]
     Active Substance: IRINOTECAN
     Dates: start: 20140623, end: 20140623

REACTIONS (3)
  - Large intestinal stenosis [Unknown]
  - Ileus [Unknown]
  - Disease progression [Fatal]

NARRATIVE: CASE EVENT DATE: 20140914
